FAERS Safety Report 11048911 (Version 1)
Quarter: 2015Q2

REPORT INFORMATION
  Report Type: Spontaneous
  Country: US (occurrence: US)
  Receive Date: 20150420
  Receipt Date: 20150420
  Transmission Date: 20150821
  Serious: Yes (Hospitalization)
  Sender: FDA-Public Use
  Company Number: PHHY2015US045277

PATIENT
  Age: 78 Year
  Sex: Female

DRUGS (2)
  1. ALPRAZOLAM. [Suspect]
     Active Substance: ALPRAZOLAM
     Indication: DEPRESSION
     Dosage: 0.5 MG, TID FOR 40 YEARS
     Route: 065
  2. ALPRAZOLAM. [Suspect]
     Active Substance: ALPRAZOLAM
     Indication: ANXIETY

REACTIONS (6)
  - Corneal reflex decreased [Recovered/Resolved]
  - Drug withdrawal syndrome [Recovering/Resolving]
  - Locked-in syndrome [Recovering/Resolving]
  - Catatonia [Recovering/Resolving]
  - Waxy flexibility [Recovering/Resolving]
  - Negative thoughts [Recovering/Resolving]
